FAERS Safety Report 18386473 (Version 1)
Quarter: 2020Q4

REPORT INFORMATION
  Report Type: Spontaneous
  Country: US (occurrence: US)
  Receive Date: 20201015
  Receipt Date: 20201015
  Transmission Date: 20210114
  Serious: No
  Sender: FDA-Public Use
  Company Number: US-MYLANLABS-2020M1081814

PATIENT
  Age: 61 Year
  Sex: Female
  Weight: 104 kg

DRUGS (1)
  1. LIDOCAINE PATCH [Suspect]
     Active Substance: LIDOCAINE
     Indication: LIGAMENT SPRAIN
     Dosage: ON 12 HOURS; OFF 12 HOURS
     Route: 003
     Dates: start: 20200921

REACTIONS (3)
  - Drug ineffective for unapproved indication [Recovering/Resolving]
  - Product quality issue [Unknown]
  - Product adhesion issue [Recovering/Resolving]

NARRATIVE: CASE EVENT DATE: 20200922
